FAERS Safety Report 9952078 (Version 1)
Quarter: 2014Q1

REPORT INFORMATION
  Report Type: Report from Study
  Country: US (occurrence: US)
  Receive Date: 20140304
  Receipt Date: 20140304
  Transmission Date: 20141002
  Serious: No
  Sender: FDA-Public Use
  Company Number: US-ABBVIE-13P-163-1071401-00

PATIENT
  Age: 51 Year
  Sex: Female

DRUGS (7)
  1. HUMIRA [Suspect]
     Indication: CROHN^S DISEASE
     Dates: start: 201212
  2. MERCAPTOPURINE [Concomitant]
     Indication: CROHN^S DISEASE
  3. ALPRAZOLAM [Concomitant]
     Indication: ANXIETY
  4. RANITADINE [Concomitant]
     Indication: GASTROOESOPHAGEAL REFLUX DISEASE
  5. VITAMIN D [Concomitant]
     Indication: VITAMIN SUPPLEMENTATION
  6. LIALDA [Concomitant]
     Indication: CROHN^S DISEASE
  7. CALTRATE [Concomitant]
     Indication: VITAMIN SUPPLEMENTATION

REACTIONS (2)
  - Injection site erythema [Recovered/Resolved]
  - Injection site mass [Recovered/Resolved]
